FAERS Safety Report 17680123 (Version 1)
Quarter: 2020Q2

REPORT INFORMATION
  Report Type: Spontaneous
  Country: US (occurrence: US)
  Receive Date: 20200417
  Receipt Date: 20200417
  Transmission Date: 20200714
  Serious: Yes (Hospitalization)
  Sender: FDA-Public Use
  Company Number: None

PATIENT
  Age: 48 Year
  Sex: Female
  Weight: 79.5 kg

DRUGS (8)
  1. CISPLATIN. [Suspect]
     Active Substance: CISPLATIN
     Dates: end: 20200328
  2. LOVENOX [Concomitant]
     Active Substance: ENOXAPARIN SODIUM
  3. ETOPOSIDE (VP-16) [Suspect]
     Active Substance: ETOPOSIDE
     Dates: end: 20200328
  4. LOPRESSOR [Concomitant]
     Active Substance: METOPROLOL TARTRATE
  5. COLACE [Concomitant]
     Active Substance: DOCUSATE SODIUM
  6. IBUPROFEN. [Concomitant]
     Active Substance: IBUPROFEN
  7. BLEOMYCIN [Suspect]
     Active Substance: BLEOMYCIN SULFATE
     Dosage: ?          OTHER DOSE:30 UNIT;?
     Dates: end: 20200324
  8. LANTUS [Concomitant]
     Active Substance: INSULIN GLARGINE

REACTIONS (5)
  - Dehydration [None]
  - Vomiting [None]
  - Nausea [None]
  - Neutrophil count decreased [None]
  - Laboratory test abnormal [None]

NARRATIVE: CASE EVENT DATE: 20200409
